FAERS Safety Report 5026061-7 (Version None)
Quarter: 2006Q2

REPORT INFORMATION
  Report Type: 
  Country: None (occurrence: None)
  Receive Date: 20060608
  Receipt Date: 20060524
  Transmission Date: 20061013
  Serious: Yes (Hospitalization)
  Sender: FDA-Public Use
  Company Number: 230020M03CHE

PATIENT
  Age: 52 Year
  Sex: Female

DRUGS (1)
  1. REBIF [Suspect]
     Indication: RELAPSING-REMITTING MULTIPLE SCLEROSIS
     Dosage: 5 OTHER, 1 IN 1 DAYS, SUBCUTANEOUS
     Route: 058
     Dates: start: 20020325, end: 20020801

REACTIONS (1)
  - BREAST CANCER FEMALE [None]
